FAERS Safety Report 6846640-1 (Version None)
Quarter: 2010Q3

REPORT INFORMATION
  Report Type: 
  Country: None (occurrence: None)
  Receive Date: 20100715
  Receipt Date: 20070918
  Transmission Date: 20110219
  Serious: Yes (Other)
  Sender: FDA-Public Use
  Company Number: US-PFIZER INC-2007078761

PATIENT
  Sex: Male
  Weight: 80.7 kg

DRUGS (5)
  1. CHANTIX [Suspect]
     Indication: NICOTINE DEPENDENCE
     Route: 048
     Dates: start: 20070917
  2. CYMBALTA [Concomitant]
  3. XANAX [Concomitant]
  4. PREVACID [Concomitant]
  5. ZOCOR [Concomitant]

REACTIONS (3)
  - AGITATION [None]
  - DISORIENTATION [None]
  - IRRITABILITY [None]
